FAERS Safety Report 12824769 (Version 1)
Quarter: 2016Q4

REPORT INFORMATION
  Report Type: Spontaneous
  Country: DE (occurrence: DE)
  Receive Date: 20161007
  Receipt Date: 20161007
  Transmission Date: 20170207
  Serious: Yes (Congenital Anomaly, Other)
  Sender: FDA-Public Use
  Company Number: DE-DRREDDYS-GER/GER/16/0083687

PATIENT
  Sex: Male
  Weight: 2.54 kg

DRUGS (2)
  1. FEMIBION [Concomitant]
     Active Substance: VITAMINS
     Indication: PROPHYLAXIS OF NEURAL TUBE DEFECT
     Route: 064
     Dates: start: 20150814, end: 20160302
  2. CITALOPRAM [Suspect]
     Active Substance: CITALOPRAM HYDROBROMIDE
     Indication: DEPRESSION
     Route: 064
     Dates: start: 20150715, end: 20160302

REACTIONS (11)
  - Epilepsy congenital [Not Recovered/Not Resolved]
  - Somnolence [Recovered/Resolved]
  - Atrial septal defect [Unknown]
  - Foot deformity [Recovering/Resolving]
  - Bradycardia neonatal [Recovered/Resolved]
  - Respiratory disorder neonatal [Recovered/Resolved]
  - Muscle tone disorder [Not Recovered/Not Resolved]
  - Hypoglycaemia neonatal [Recovered/Resolved]
  - Hyperbilirubinaemia neonatal [Recovered/Resolved]
  - Foetal exposure during pregnancy [Unknown]
  - Talipes [Recovering/Resolving]

NARRATIVE: CASE EVENT DATE: 20160302
